FAERS Safety Report 16099407 (Version 1)
Quarter: 2019Q1

REPORT INFORMATION
  Report Type: Spontaneous
  Country: US (occurrence: US)
  Receive Date: 20190321
  Receipt Date: 20190321
  Transmission Date: 20190418
  Serious: No
  Sender: FDA-Public Use
  Company Number: US-LUNDBECK-DKLU2062197

PATIENT
  Sex: Male

DRUGS (2)
  1. SABRIL [Suspect]
     Active Substance: VIGABATRIN
     Route: 048
     Dates: start: 20180520
  2. SABRIL [Suspect]
     Active Substance: VIGABATRIN
     Indication: INFANTILE SPASMS
     Route: 048
     Dates: start: 20180520

REACTIONS (4)
  - Irritability [Not Recovered/Not Resolved]
  - Decreased appetite [Not Recovered/Not Resolved]
  - Product dose omission [Not Recovered/Not Resolved]
  - Feeling abnormal [Not Recovered/Not Resolved]
